FAERS Safety Report 18369365 (Version 1)
Quarter: 2020Q4

REPORT INFORMATION
  Report Type: Spontaneous
  Country: BE (occurrence: BE)
  Receive Date: 20201012
  Receipt Date: 20201012
  Transmission Date: 20210114
  Serious: Yes (Hospitalization)
  Sender: FDA-Public Use
  Company Number: BE-ABBVIE-20K-013-3602284-00

PATIENT
  Age: 17 Year
  Sex: Male

DRUGS (3)
  1. HUMIRA [Suspect]
     Active Substance: ADALIMUMAB
     Indication: CROHN^S DISEASE
     Route: 058
     Dates: start: 20141215, end: 201709
  2. HUMIRA [Suspect]
     Active Substance: ADALIMUMAB
     Route: 058
     Dates: start: 20200922
  3. HUMIRA [Suspect]
     Active Substance: ADALIMUMAB
     Route: 058
     Dates: start: 201709, end: 20200922

REACTIONS (12)
  - Crohn^s disease [Recovered/Resolved]
  - Crohn^s disease [Recovered/Resolved]
  - Condition aggravated [Recovered/Resolved]
  - Crohn^s disease [Recovered/Resolved]
  - Off label use [Unknown]
  - Vomiting [Unknown]
  - Drug level decreased [Unknown]
  - Red blood cell sedimentation rate increased [Recovered/Resolved]
  - Crohn^s disease [Recovered/Resolved]
  - Inflammatory marker increased [Recovering/Resolving]
  - Unevaluable event [Recovering/Resolving]
  - Crohn^s disease [Recovered/Resolved]

NARRATIVE: CASE EVENT DATE: 2015
